FAERS Safety Report 7509287-X (Version None)
Quarter: 2011Q2

REPORT INFORMATION
  Report Type: 
  Country: None (occurrence: None)
  Receive Date: 20110527
  Receipt Date: 20110520
  Transmission Date: 20111010
  Serious: Yes (Other)
  Sender: FDA-Public Use
  Company Number: KR-ROCHE-778518

PATIENT
  Sex: Female

DRUGS (3)
  1. TRASTUZUMAB [Suspect]
     Indication: BREAST CANCER
     Dosage: LOADING DOSE, FORM: INJECTION
     Route: 042
     Dates: start: 20080723
  2. TRASTUZUMAB [Suspect]
     Route: 042
  3. TRASTUZUMAB [Suspect]
     Route: 042
     Dates: start: 20081231

REACTIONS (1)
  - ALANINE AMINOTRANSFERASE INCREASED [None]
